FAERS Safety Report 9605915 (Version 1)
Quarter: 2013Q4

REPORT INFORMATION
  Report Type: Spontaneous
  Country: DE (occurrence: DE)
  Receive Date: 20131008
  Receipt Date: 20131008
  Transmission Date: 20140711
  Serious: Yes (Congenital Anomaly, Other)
  Sender: FDA-Public Use
  Company Number: DE-GILEAD-2013-0084873

PATIENT
  Age: 0 Day
  Sex: Male

DRUGS (8)
  1. TRUVADA [Suspect]
     Indication: HIV INFECTION
     Dosage: 1 DF, QD
     Route: 064
  2. KALETRA [Suspect]
     Indication: HIV INFECTION
     Dosage: 2 DF, QD
     Route: 064
  3. VOTUM [Suspect]
     Indication: HYPERTENSION
     Dosage: 20 MG, BID
     Dates: start: 20080605, end: 20080918
  4. ENALAPRIL [Suspect]
     Indication: HYPERTENSION
     Dosage: 10 MG, BID
     Route: 064
     Dates: start: 20080605, end: 20080918
  5. CARMEN [Suspect]
     Indication: HYPERTENSION
     Dosage: 10 MG, BID
     Route: 064
     Dates: start: 20080605, end: 20080918
  6. BELOC                              /00376903/ [Concomitant]
     Indication: HYPERTENSION
     Dosage: 47.5 MG, BID
     Route: 064
     Dates: start: 20080605, end: 20090226
  7. NIFEDIPINE [Concomitant]
     Indication: HYPERTENSION
     Dosage: 40 MG, QD
     Route: 064
     Dates: start: 20080920, end: 20090226
  8. METHYLDOPA [Concomitant]
     Indication: HYPERTENSION
     Dosage: 250 MG, TID
     Route: 064
     Dates: start: 20080920, end: 20090226

REACTIONS (3)
  - Kidney duplex [Not Recovered/Not Resolved]
  - Congenital hearing disorder [Not Recovered/Not Resolved]
  - Supernumerary nipple [Not Recovered/Not Resolved]
